FAERS Safety Report 21790455 (Version 1)
Quarter: 2022Q4

REPORT INFORMATION
  Report Type: Spontaneous
  Country: BR (occurrence: BR)
  Receive Date: 20221228
  Receipt Date: 20221228
  Transmission Date: 20230113
  Serious: Yes (Hospitalization)
  Sender: FDA-Public Use
  Company Number: BR-ELI_LILLY_AND_COMPANY-BR202212010861

PATIENT
  Sex: Female

DRUGS (1)
  1. FORTEO [Suspect]
     Active Substance: TERIPARATIDE
     Indication: Osteoporosis
     Dosage: 20 UG, UNKNOWN
     Route: 058
     Dates: start: 20220222, end: 20221218

REACTIONS (11)
  - Fall [Unknown]
  - Head injury [Unknown]
  - Dizziness [Unknown]
  - Tinnitus [Unknown]
  - Epilepsy [Unknown]
  - Tremor [Unknown]
  - Eye movement disorder [Unknown]
  - Feeling abnormal [Unknown]
  - Head discomfort [Unknown]
  - Blood pressure abnormal [Unknown]
  - Asthenia [Unknown]

NARRATIVE: CASE EVENT DATE: 20220901
